FAERS Safety Report 15565058 (Version 2)
Quarter: 2019Q1

REPORT INFORMATION
  Report Type: Report from Study
  Country: US (occurrence: US)
  Receive Date: 20181030
  Receipt Date: 20190103
  Transmission Date: 20190417
  Serious: Yes (Death, Other)
  Sender: FDA-Public Use
  Company Number: US-BRISTOL-MYERS SQUIBB COMPANY-BMS-2018-097993

PATIENT
  Age: 53 Year
  Sex: Male
  Weight: 107.3 kg

DRUGS (1)
  1. BELATACEPT [Suspect]
     Active Substance: BELATACEPT
     Indication: RENAL TRANSPLANT
     Dosage: UNK UNK, QMO
     Route: 042
     Dates: start: 20130725, end: 20180418

REACTIONS (1)
  - Death [Fatal]

NARRATIVE: CASE EVENT DATE: 20180605
